FAERS Safety Report 4305865-X (Version None)
Quarter: 2004Q1

REPORT INFORMATION
  Report Type: 
  Country: None (occurrence: None)
  Receive Date: 20040225
  Receipt Date: 20040217
  Transmission Date: 20041129
  Serious: Yes (Death)
  Sender: FDA-Public Use
  Company Number: 2004-112989-NL

PATIENT
  Sex: Female

DRUGS (2)
  1. MIRTAZAPINE [Suspect]
     Indication: DEPRESSION
     Dosage: 30 MG ORAL
     Route: 048
  2. CLONAZEPINE [Concomitant]

REACTIONS (1)
  - CONVULSION [None]
